FAERS Safety Report 8790579 (Version 1)
Quarter: 2012Q4

REPORT INFORMATION
  Report Type: Spontaneous
  Country: US (occurrence: None)
  Receive Date: 20120912
  Receipt Date: 20120912
  Transmission Date: 20130627
  Serious: No
  Sender: FDA-Public Use
  Company Number: None

PATIENT
  Age: 75 Year
  Sex: Female

DRUGS (1)
  1. NITROFURANTION MACROCRYSTALS [Suspect]
     Indication: URINARY TRACT INFECTION
     Dosage: dates: AUG 16-17-18dOSE: 1 CAP- 2 X DAY BY MOUNTH
     Route: 048

REACTIONS (2)
  - Paraesthesia [None]
  - Hypoaesthesia [None]
